FAERS Safety Report 22314310 (Version 9)
Quarter: 2023Q4

REPORT INFORMATION
  Report Type: Spontaneous
  Country: JP (occurrence: JP)
  Receive Date: 20230512
  Receipt Date: 20231012
  Transmission Date: 20240110
  Serious: Yes (Death, Hospitalization, Other)
  Sender: FDA-Public Use
  Company Number: JP-GLAXOSMITHKLINE-JP2023JPN067560

PATIENT

DRUGS (51)
  1. DAPRODUSTAT [Suspect]
     Active Substance: DAPRODUSTAT
     Indication: Nephrogenic anaemia
     Dosage: 2 MG, 1D
     Route: 048
     Dates: start: 20230214, end: 20230417
  2. PREDONINE [Suspect]
     Active Substance: PREDNISOLONE
     Indication: Interstitial lung disease
     Dosage: 5 MG, 1D
     Dates: start: 2023, end: 20230313
  3. PREDONINE [Suspect]
     Active Substance: PREDNISOLONE
     Dosage: 5 MG, 1D
     Dates: start: 20230329, end: 20230417
  4. PROGRAF [Suspect]
     Active Substance: TACROLIMUS
     Indication: Interstitial lung disease
     Dosage: 1 MG, 1D
     Dates: start: 20230324, end: 20230417
  5. ENALAPRIL MALEATE [Concomitant]
     Active Substance: ENALAPRIL MALEATE
     Dosage: 2.5 MG, 1D
     Dates: end: 20230410
  6. KETOPROFEN [Concomitant]
     Active Substance: KETOPROFEN
     Dosage: 40 MG, 1D
     Dates: end: 20230214
  7. JARDIANCE [Concomitant]
     Active Substance: EMPAGLIFLOZIN
     Dosage: 10 MG, 1D
     Dates: end: 20230227
  8. GLACTIV TABLET [Concomitant]
     Dosage: 50 MG, 1D
     Dates: end: 20230410
  9. GLACTIV TABLET [Concomitant]
     Dosage: 50 MG, 1D
     Dates: start: 20230412, end: 20230417
  10. MITIGLINIDE CALCIUM HYDRATE\VOGLIBOSE [Concomitant]
     Active Substance: MITIGLINIDE CALCIUM HYDRATE\VOGLIBOSE
     Dosage: UNK, TID
     Dates: end: 20230410
  11. MITIGLINIDE CALCIUM HYDRATE\VOGLIBOSE [Concomitant]
     Active Substance: MITIGLINIDE CALCIUM HYDRATE\VOGLIBOSE
     Dosage: UNK, TID
     Dates: start: 20230412, end: 20230417
  12. METGLUCO TABLETS [Concomitant]
     Dosage: 250 MG, BID
     Dates: end: 20230417
  13. SULFAMETHOXAZOLE\TRIMETHOPRIM [Concomitant]
     Active Substance: SULFAMETHOXAZOLE\TRIMETHOPRIM
     Dosage: 480 MG, 1D
     Dates: end: 20230410
  14. BELSOMRA [Concomitant]
     Active Substance: SUVOREXANT
     Dosage: 15 MG, 1D
     Dates: end: 20230410
  15. LANSOPRAZOLE [Concomitant]
     Active Substance: LANSOPRAZOLE
     Dosage: 15 MG, 1D
     Dates: end: 20230410
  16. ROSUVASTATIN CALCIUM [Concomitant]
     Active Substance: ROSUVASTATIN CALCIUM
     Dosage: 2.5 MG, 1D
     Dates: end: 20230410
  17. ROSUVASTATIN CALCIUM [Concomitant]
     Active Substance: ROSUVASTATIN CALCIUM
     Dosage: 2.5 MG, 1D
     Dates: start: 20230412, end: 20230417
  18. CARVEDILOL [Concomitant]
     Active Substance: CARVEDILOL
     Dosage: 5 MG, BID
     Dates: end: 20230405
  19. CARVEDILOL [Concomitant]
     Active Substance: CARVEDILOL
     Dosage: 10 MG, BID
     Dates: start: 20230406, end: 20230410
  20. CARVEDILOL [Concomitant]
     Active Substance: CARVEDILOL
     Dosage: 10 MG, BID
     Dates: start: 20230412, end: 20230417
  21. FEBUXOSTAT [Concomitant]
     Active Substance: FEBUXOSTAT
     Dosage: 10 MG, 1D
     Dates: end: 20230410
  22. FEBUXOSTAT [Concomitant]
     Active Substance: FEBUXOSTAT
     Dosage: 10 MG, 1D
     Dates: start: 20230412, end: 20230417
  23. AZOSEMIDE TABLET [Concomitant]
     Dosage: 60 MG, 1D
     Dates: end: 20230227
  24. AZOSEMIDE TABLET [Concomitant]
     Dosage: 30 MG, 1D
     Dates: start: 20230228, end: 20230410
  25. EDOXABAN TOSYLATE [Concomitant]
     Active Substance: EDOXABAN TOSYLATE
     Dosage: 30 MG, 1D
     Dates: end: 20230410
  26. EDOXABAN TOSYLATE [Concomitant]
     Active Substance: EDOXABAN TOSYLATE
     Dosage: 30 MG, 1D
     Dates: start: 20230412, end: 20230417
  27. FUROSEMIDE [Concomitant]
     Active Substance: FUROSEMIDE
     Dosage: 10 MG
     Dates: end: 20230305
  28. FUROSEMIDE [Concomitant]
     Active Substance: FUROSEMIDE
     Dosage: 20 MG
     Route: 042
     Dates: start: 20230417, end: 20230417
  29. DAYVIGO [Concomitant]
     Active Substance: LEMBOREXANT
     Dosage: 5 MG
     Dates: start: 20230320, end: 20230323
  30. DAYVIGO [Concomitant]
     Active Substance: LEMBOREXANT
     Dosage: 5 MG
     Dates: start: 20230325, end: 20230331
  31. CARBOHYDRATES\FATTY ACIDS\MINERALS\PROTEIN\VITAMINS [Concomitant]
     Active Substance: CARBOHYDRATES\FATTY ACIDS\MINERALS\PROTEIN\VITAMINS
     Dosage: 1D
     Dates: start: 20230320, end: 20230326
  32. SODIUM CHLORIDE [Concomitant]
     Active Substance: SODIUM CHLORIDE
     Dosage: TID
     Dates: start: 20230330
  33. VONOPRAZAN FUMARATE [Concomitant]
     Active Substance: VONOPRAZAN FUMARATE
     Dosage: 20 MG, 1D
     Dates: start: 20230406, end: 20230410
  34. VONOPRAZAN FUMARATE [Concomitant]
     Active Substance: VONOPRAZAN FUMARATE
     Dosage: 20 MG, 1D
     Dates: start: 20230412, end: 20230417
  35. BETAHISTINE MESILATE TABLET [Concomitant]
     Dosage: 6 MG, TID
     Dates: start: 20230413, end: 20230417
  36. ISOTONIC SODIUM CHLORIDE SOLUTION [Concomitant]
     Active Substance: SODIUM CHLORIDE
     Dosage: 100 CC
     Route: 041
     Dates: start: 20230220, end: 20230220
  37. ISOTONIC SODIUM CHLORIDE SOLUTION [Concomitant]
     Active Substance: SODIUM CHLORIDE
     Dosage: 500 CC
     Route: 041
     Dates: start: 20230228, end: 20230228
  38. ISOTONIC SODIUM CHLORIDE SOLUTION [Concomitant]
     Active Substance: SODIUM CHLORIDE
     Dosage: 100 CC
     Route: 041
     Dates: start: 20230303, end: 20230303
  39. ISOTONIC SODIUM CHLORIDE SOLUTION [Concomitant]
     Active Substance: SODIUM CHLORIDE
     Dosage: 500 CC
     Route: 041
     Dates: start: 20230307, end: 20230307
  40. ISOTONIC SODIUM CHLORIDE SOLUTION [Concomitant]
     Active Substance: SODIUM CHLORIDE
     Dosage: 10 CC
     Route: 041
     Dates: start: 20230307, end: 20230307
  41. ISOTONIC SODIUM CHLORIDE SOLUTION [Concomitant]
     Active Substance: SODIUM CHLORIDE
     Dosage: 10 CC
     Route: 041
     Dates: start: 20230403, end: 20230403
  42. ISOTONIC SODIUM CHLORIDE SOLUTION [Concomitant]
     Active Substance: SODIUM CHLORIDE
     Dosage: 10 CC
     Route: 041
     Dates: start: 20230410, end: 20230410
  43. SOLDEM 3 [Concomitant]
     Dosage: 500 CC
     Route: 041
     Dates: start: 20230307, end: 20230307
  44. SOLDEM 3 [Concomitant]
     Dosage: 500 CC
     Route: 041
     Dates: start: 20230323, end: 20230411
  45. SOLDEM 3 [Concomitant]
     Dosage: 500 CC
     Route: 041
     Dates: start: 20230417, end: 20230417
  46. HUMULIN R INJECTION [Concomitant]
     Dosage: 1000 IU
     Route: 058
     Dates: start: 20230315, end: 20230315
  47. HUMULIN R INJECTION [Concomitant]
     Dosage: 1000 IU
     Route: 058
     Dates: start: 20230319, end: 20230319
  48. HUMULIN R INJECTION [Concomitant]
     Dosage: 1000 IU
     Route: 058
     Dates: start: 20230320, end: 20230320
  49. HUMULIN R INJECTION [Concomitant]
     Dosage: 1000 IU
     Route: 058
     Dates: start: 20230324, end: 20230324
  50. HUMULIN R INJECTION [Concomitant]
     Dosage: 1000 IU
     Route: 041
     Dates: start: 20230325, end: 20230411
  51. SODIUM CHLORIDE [Concomitant]
     Active Substance: SODIUM CHLORIDE
     Dosage: 20 CC
     Dates: start: 20230328, end: 20230411

REACTIONS (11)
  - Steroid diabetes [Recovering/Resolving]
  - Myopathy [Recovering/Resolving]
  - Immobilisation syndrome [Recovering/Resolving]
  - Movement disorder [Recovering/Resolving]
  - Feeding disorder [Recovering/Resolving]
  - Physical deconditioning [Fatal]
  - Liver disorder [Fatal]
  - Altered state of consciousness [Fatal]
  - Multiple organ dysfunction syndrome [Fatal]
  - Prescribed underdose [Unknown]
  - Off label use [Unknown]

NARRATIVE: CASE EVENT DATE: 20230228
